FAERS Safety Report 15109215 (Version 2)
Quarter: 2018Q3

REPORT INFORMATION
  Report Type: Report from Study
  Country: IT (occurrence: IT)
  Receive Date: 20180705
  Receipt Date: 20180904
  Transmission Date: 20181010
  Serious: Yes (Hospitalization)
  Sender: FDA-Public Use
  Company Number: IT-TEVA-2018-IT-921041

PATIENT
  Age: 69 Year
  Sex: Male

DRUGS (5)
  1. CLARITHROMYCIN. [Suspect]
     Active Substance: CLARITHROMYCIN
     Indication: PNEUMONITIS
     Dosage: 1 GRAM DAILY;
     Route: 048
     Dates: start: 20180301, end: 20180308
  2. CEFTRIAXONE. [Concomitant]
     Active Substance: CEFTRIAXONE
     Indication: PNEUMONITIS
     Route: 041
     Dates: start: 20180301, end: 20180312
  3. CARBAMAZEPINE. [Suspect]
     Active Substance: CARBAMAZEPINE
     Indication: EPILEPSY
     Dosage: 1000 MILLIGRAM DAILY;
     Route: 048
  4. LACOSAMIDE. [Concomitant]
     Active Substance: LACOSAMIDE
     Route: 048
  5. SODIO VALPROATO/ACIDO VALPROICO [Concomitant]
     Active Substance: VALPROATE SODIUM
     Route: 048

REACTIONS (6)
  - Adverse drug reaction [Recovering/Resolving]
  - Retching [Recovering/Resolving]
  - Nausea [Recovered/Resolved]
  - Cold sweat [Recovered/Resolved]
  - Vertigo [Recovered/Resolved]
  - Speech disorder [Recovered/Resolved]

NARRATIVE: CASE EVENT DATE: 20180303
